FAERS Safety Report 5153038-3 (Version None)
Quarter: 2006Q4

REPORT INFORMATION
  Report Type: 
  Country: None (occurrence: None)
  Receive Date: 20061113
  Receipt Date: 20061026
  Transmission Date: 20070319
  Serious: Yes (Life-Threatening, Hospitalization, Disabling, Other)
  Sender: FDA-Public Use
  Company Number: 2006RR-04308

PATIENT
  Age: 21 Year
  Sex: Male
  Weight: 70 kg

DRUGS (2)
  1. FLUOXETINE [Suspect]
     Dosage: SEE IMAGE
     Route: 048
     Dates: start: 20060731, end: 20060823
  2. FLUOXETINE [Suspect]
     Dosage: SEE IMAGE
     Route: 048
     Dates: start: 20060823, end: 20060914

REACTIONS (3)
  - ANAEMIA [None]
  - HYPONATRAEMIA [None]
  - SEROTONIN SYNDROME [None]
